FAERS Safety Report 9927864 (Version 1)
Quarter: 2014Q1

REPORT INFORMATION
  Report Type: Spontaneous
  Country: US (occurrence: None)
  Receive Date: 20140226
  Receipt Date: 20140226
  Transmission Date: 20141002
  Serious: Yes (Death, Hospitalization)
  Sender: FDA-Public Use
  Company Number: None

PATIENT
  Age: 51 Year
  Sex: Male
  Weight: 102.06 kg

DRUGS (1)
  1. DIVALPROEX [Suspect]
     Indication: PSYCHOTIC DISORDER
     Route: 048
     Dates: start: 20131018, end: 20140129

REACTIONS (4)
  - Pancreatitis [None]
  - Pancreas infection [None]
  - Sepsis [None]
  - Cardiac arrest [None]
